FAERS Safety Report 8260616-1 (Version None)
Quarter: 2012Q2

REPORT INFORMATION
  Report Type: 
  Country: None (occurrence: None)
  Receive Date: 20120404
  Receipt Date: 20120402
  Transmission Date: 20120825
  Serious: Yes (Death, Life-Threatening)
  Sender: FDA-Public Use
  Company Number: US-BAXTER-2012BAX002083

PATIENT
  Age: 24 Month
  Sex: Male

DRUGS (1)
  1. CEFTRIAXONE [Suspect]
     Indication: FEBRILE INFECTION
     Route: 042

REACTIONS (1)
  - HAEMOLYTIC ANAEMIA [None]
